FAERS Safety Report 20064710 (Version 3)
Quarter: 2021Q4

REPORT INFORMATION
  Report Type: Spontaneous
  Country: RO (occurrence: RO)
  Receive Date: 20211112
  Receipt Date: 20211208
  Transmission Date: 20220303
  Serious: Yes (Death, Other)
  Sender: FDA-Public Use
  Company Number: RO-TOLMAR, INC.-21RO031304

PATIENT
  Sex: Male

DRUGS (10)
  1. ELIGARD [Suspect]
     Active Substance: LEUPROLIDE ACETATE
     Indication: Prostate cancer
     Dosage: 22.5 MILLIGRAM, Q 3 MONTH
     Dates: start: 20180611
  2. XTANDI [Suspect]
     Active Substance: ENZALUTAMIDE
     Indication: Prostate cancer
     Dosage: 160 MILLIGRAM, QD
     Dates: start: 20190906
  3. VENDAL [MORPHINE HYDROCHLORIDE] [Concomitant]
     Indication: Pain
     Dosage: 2 DOSAGE FORM, QD
     Dates: start: 20190807
  4. MORPHINE [Concomitant]
     Active Substance: MORPHINE
     Indication: Pain
     Dosage: 1 DOSAGE FORM, BID
     Dates: start: 20190807
  5. BONEFOS [Concomitant]
     Active Substance: CLODRONATE DISODIUM
     Indication: Product used for unknown indication
     Dosage: 2 DOSAGE FORM, QD
     Route: 048
  6. ABIRATERONE [Concomitant]
     Active Substance: ABIRATERONE
     Indication: Prostatic specific antigen increased
     Dosage: UNK
     Dates: start: 20180926, end: 20190522
  7. PREDNISONE [Concomitant]
     Active Substance: PREDNISONE
     Indication: Prostatic specific antigen increased
     Dosage: UNK
     Dates: start: 20180926
  8. ZOLADEX [Concomitant]
     Active Substance: GOSERELIN ACETATE
     Indication: Prostate cancer
     Dosage: 10.8 MILLIGRAM, Q 3 MONTH
  9. CYPROTERONE ACETATE [Concomitant]
     Active Substance: CYPROTERONE ACETATE
     Indication: Prostate cancer
     Dosage: 4 DOSAGE FORM, QD
     Dates: start: 201602
  10. CYPROTERONE ACETATE [Concomitant]
     Active Substance: CYPROTERONE ACETATE
     Dosage: 6 DOSAGE FORM, QD
     Dates: start: 201602

REACTIONS (4)
  - Spinal cord compression [Fatal]
  - Prostatic specific antigen increased [Unknown]
  - Bone pain [Unknown]
  - Metastases to bone [Fatal]

NARRATIVE: CASE EVENT DATE: 20190829
